FAERS Safety Report 19226435 (Version 1)
Quarter: 2021Q2

REPORT INFORMATION
  Report Type: Spontaneous
  Country: US (occurrence: US)
  Receive Date: 20210506
  Receipt Date: 20210506
  Transmission Date: 20210717
  Serious: Yes (Hospitalization)
  Sender: FDA-Public Use
  Company Number: NVSC2021US096965

PATIENT
  Age: 38 Year
  Sex: Male

DRUGS (4)
  1. DIPHENHYDRAMINE. [Concomitant]
     Active Substance: DIPHENHYDRAMINE
     Indication: DRUG HYPERSENSITIVITY
     Dosage: 50 MG, Q6H
     Route: 048
  2. CEFTRIAXONE. [Suspect]
     Active Substance: CEFTRIAXONE
     Indication: NEUROSYPHILIS
     Dosage: 2 G, QD
     Route: 042
  3. PREDNISONE. [Concomitant]
     Active Substance: PREDNISONE
     Indication: DRUG HYPERSENSITIVITY
     Dosage: 20 MG, BID
     Route: 048
  4. CETIRIZINE [Concomitant]
     Active Substance: CETIRIZINE HYDROCHLORIDE
     Indication: DRUG HYPERSENSITIVITY
     Dosage: 20 MG, BID
     Route: 048

REACTIONS (1)
  - Infusion related reaction [Recovered/Resolved]
